FAERS Safety Report 9521246 (Version 1)
Quarter: 2013Q3

REPORT INFORMATION
  Report Type: Spontaneous
  Country: JP (occurrence: None)
  Receive Date: 20130829
  Receipt Date: 20130829
  Transmission Date: 20140515
  Serious: Yes (Life-Threatening)
  Sender: FDA-Public Use
  Company Number: 0241113

PATIENT
  Age: 66 Year
  Sex: Male

DRUGS (8)
  1. TACHOSIL [Suspect]
     Indication: HAEMOSTASIS
     Dosage: 1 SHEET
     Dates: start: 20130124
  2. SONAZOID (INJECTION) [Concomitant]
  3. UNISIA (CANDESARTAN) [Concomitant]
  4. METGLUCO (METFORMIN) [Concomitant]
  5. OPALMON (LIMAPROST) [Concomitant]
  6. FAMOTIDINE (FAMOTIDINE) [Concomitant]
  7. ALOSITOL (ALLOPURINOL) [Concomitant]
  8. PLASMA DERIVATIVES (PLASMA) [Concomitant]

REACTIONS (2)
  - Duodenal ulcer [None]
  - Hepatocellular carcinoma [None]
